FAERS Safety Report 11315851 (Version 1)
Quarter: 2015Q3

REPORT INFORMATION
  Report Type: Spontaneous
  Country: US (occurrence: None)
  Receive Date: 20150724
  Receipt Date: 20150724
  Transmission Date: 20151125
  Serious: Yes (Other)
  Sender: FDA-Public Use
  Company Number: US-H14001-15-01380

PATIENT
  Age: 59 Year
  Sex: Female

DRUGS (5)
  1. OXYCODONE [Concomitant]
     Active Substance: OXYCODONE
  2. MORPHINE SULFATE. [Suspect]
     Active Substance: MORPHINE SULFATE
     Indication: PAIN
     Dosage: NOT OTHERWISE SPECIFIED
     Route: 042
  3. FENTANYL. [Concomitant]
     Active Substance: FENTANYL
  4. SODIUM THIOSULFATE [Concomitant]
     Active Substance: SODIUM THIOSULFATE
  5. LORAZEPAM. [Concomitant]
     Active Substance: LORAZEPAM

REACTIONS (12)
  - Pain [None]
  - Confusional state [None]
  - Screaming [None]
  - Drug clearance decreased [None]
  - Skin ulcer [None]
  - Agitation [None]
  - Unresponsive to stimuli [None]
  - Blood pressure decreased [None]
  - Myoclonus [None]
  - Neurotoxicity [None]
  - Heart rate increased [None]
  - Allodynia [None]
